FAERS Safety Report 15959472 (Version 1)
Quarter: 2019Q1

REPORT INFORMATION
  Report Type: Spontaneous
  Country: CN (occurrence: CN)
  Receive Date: 20190214
  Receipt Date: 20190214
  Transmission Date: 20190417
  Serious: Yes (Other)
  Sender: FDA-Public Use
  Company Number: CN-ACCORD-103395

PATIENT
  Age: 50 Year
  Sex: Male

DRUGS (2)
  1. CISPLATIN. [Suspect]
     Active Substance: CISPLATIN
     Indication: LUNG ADENOCARCINOMA
     Dosage: DAYS 2, 3 AND 4; 40 MG EACH DAY), 21 DAYS
     Dates: start: 20160821, end: 20161111
  2. GEMCITABINE/GEMCITABINE HYDROCHLORIDE [Suspect]
     Active Substance: GEMCITABINE\GEMCITABINE HYDROCHLORIDE
     Indication: LUNG ADENOCARCINOMA
     Dosage: 1 G/M2 ,DAYS 1, 8; 1.8 G EACH DAY), 21 DAYS
     Dates: start: 20160821, end: 20161111

REACTIONS (7)
  - Drug intolerance [Recovered/Resolved]
  - Disease progression [None]
  - Vomiting [Recovered/Resolved]
  - White blood cell count decreased [Recovered/Resolved]
  - Nausea [Recovered/Resolved]
  - Neutrophil count decreased [Recovered/Resolved]
  - Rash [None]

NARRATIVE: CASE EVENT DATE: 20160822
